FAERS Safety Report 7120816-0 (Version None)
Quarter: 2010Q4

REPORT INFORMATION
  Report Type: 
  Country: None (occurrence: None)
  Receive Date: 20101124
  Receipt Date: 20101109
  Transmission Date: 20110411
  Serious: Yes (Hospitalization)
  Sender: FDA-Public Use
  Company Number: US-JNJFOC-20101106810

PATIENT
  Age: 54 Year
  Sex: Female

DRUGS (9)
  1. MOTRIN [Suspect]
     Indication: PRODUCT USED FOR UNKNOWN INDICATION
     Route: 048
  2. THEO-DUR [Suspect]
     Indication: ILL-DEFINED DISORDER
  3. ALCOHOL [Suspect]
     Indication: ILL-DEFINED DISORDER
  4. DINITRATE ISOSORBIDE [Concomitant]
  5. FUROSEMIDE [Concomitant]
  6. CONJUGATED ESTROGEN [Concomitant]
  7. MEDROXYPROGESTERONE [Concomitant]
  8. DILTIAZEM HCL [Concomitant]
  9. DIGOXIN [Concomitant]

REACTIONS (10)
  - BLOOD GLUCOSE INCREASED [None]
  - CARDIAC ARREST [None]
  - CIRCULATORY COLLAPSE [None]
  - COMPLETED SUICIDE [None]
  - INTENTIONAL OVERDOSE [None]
  - RESPIRATORY ALKALOSIS [None]
  - SOMNOLENCE [None]
  - SUICIDE ATTEMPT [None]
  - VOMITING [None]
  - WHITE BLOOD CELL COUNT INCREASED [None]
